FAERS Safety Report 24062312 (Version 1)
Quarter: 2024Q3

REPORT INFORMATION
  Report Type: Spontaneous
  Country: TR (occurrence: TR)
  Receive Date: 20240708
  Receipt Date: 20240708
  Transmission Date: 20241016
  Serious: Yes (Other)
  Sender: NOVARTIS
  Company Number: TR-002147023-NVSC2024TR139906

PATIENT
  Age: 36 Year
  Sex: Female

DRUGS (1)
  1. TRILEPTAL [Suspect]
     Active Substance: OXCARBAZEPINE
     Indication: Product used for unknown indication
     Dosage: 1 DOSAGE FORM, BID (IN THE MORNING AND EVENING)
     Route: 065

REACTIONS (2)
  - Seizure [Unknown]
  - Product supply issue [Unknown]
